FAERS Safety Report 7198232-5 (Version None)
Quarter: 2010Q4

REPORT INFORMATION
  Report Type: 
  Country: None (occurrence: None)
  Receive Date: 20101223
  Receipt Date: 20101223
  Transmission Date: 20110411
  Serious: Yes (Hospitalization)
  Sender: FDA-Public Use
  Company Number: None

PATIENT
  Age: 67 Year
  Sex: Male
  Weight: 79 kg

DRUGS (1)
  1. HEPARIN [Suspect]
     Indication: DEEP VEIN THROMBOSIS
     Dosage: 6465 UNITS X1 IV BOLUS
     Route: 040
     Dates: start: 20101214, end: 20101214

REACTIONS (3)
  - FLUSHING [None]
  - HYPERHIDROSIS [None]
  - OXYGEN SATURATION DECREASED [None]
